FAERS Safety Report 7084242-5 (Version None)
Quarter: 2010Q4

REPORT INFORMATION
  Report Type: 
  Country: None (occurrence: None)
  Receive Date: 20101104
  Receipt Date: 20101028
  Transmission Date: 20110411
  Serious: Yes (Other)
  Sender: FDA-Public Use
  Company Number: JP-PFIZER INC-2010132703

PATIENT
  Age: 76 Year
  Sex: Male

DRUGS (2)
  1. ZITHROMAX [Suspect]
     Indication: TOOTH DISORDER
     Dosage: 2 DF/DAY
     Route: 048
     Dates: start: 20100901, end: 20101001
  2. CIBENOL [Suspect]

REACTIONS (1)
  - INTERSTITIAL LUNG DISEASE [None]
